FAERS Safety Report 22641413 (Version 1)
Quarter: 2023Q2

REPORT INFORMATION
  Report Type: Spontaneous
  Country: RU (occurrence: RU)
  Receive Date: 20230626
  Receipt Date: 20230626
  Transmission Date: 20230721
  Serious: Yes (Death, Hospitalization, Other)
  Sender: FDA-Public Use
  Company Number: RU-AstraZeneca-2023A144568

PATIENT
  Age: 5 Month
  Sex: Male
  Weight: 2.3 kg

DRUGS (1)
  1. SYNAGIS [Suspect]
     Active Substance: PALIVIZUMAB
     Indication: Respiratory syncytial virus infection
     Dosage: 34 MG, IM, FOR 1 DAY, SINGLE DOSE 34.0MG ONCE/SINGLE ADMINISTRATION
     Route: 030
     Dates: start: 20221223

REACTIONS (1)
  - Death [Fatal]

NARRATIVE: CASE EVENT DATE: 20221224
